FAERS Safety Report 11359564 (Version 1)
Quarter: 2015Q3

REPORT INFORMATION
  Report Type: Spontaneous
  Country: US (occurrence: US)
  Receive Date: 20150807
  Receipt Date: 20150807
  Transmission Date: 20151125
  Serious: Yes (Other)
  Sender: FDA-Public Use
  Company Number: US-PFIZER INC-2015260718

PATIENT
  Age: 45 Year
  Sex: Female
  Weight: 88.44 kg

DRUGS (1)
  1. XANAX [Suspect]
     Active Substance: ALPRAZOLAM
     Dosage: 2 MG, AS NEEDED (TWICE A DAY)

REACTIONS (2)
  - Generalised anxiety disorder [Unknown]
  - Drug dependence [Unknown]
